FAERS Safety Report 10727990 (Version 3)
Quarter: 2015Q1

REPORT INFORMATION
  Report Type: Spontaneous
  Country: DK (occurrence: DK)
  Receive Date: 20150121
  Receipt Date: 20150127
  Transmission Date: 20150721
  Serious: Yes (Death, Hospitalization)
  Sender: FDA-Public Use
  Company Number: DK-B.I. PHARMACEUTICALS,INC./RIDGEFIELD-2015-BI-02008DB

PATIENT
  Age: 36 Year
  Sex: Male

DRUGS (3)
  1. MADOPAR [Suspect]
     Active Substance: BENSERAZIDE HYDROCHLORIDE\LEVODOPA
     Indication: PARKINSON^S DISEASE
     Dosage: STRENGTH: 125 MG, QUICK 125
     Route: 065
     Dates: start: 200511
  2. MADOPAR [Suspect]
     Active Substance: BENSERAZIDE HYDROCHLORIDE\LEVODOPA
     Indication: PARKINSON^S DISEASE
     Dosage: STRENGTH: 125 MG
     Route: 065
     Dates: start: 200511
  3. SIFROL [Suspect]
     Active Substance: PRAMIPEXOLE
     Indication: PARKINSON^S DISEASE
     Route: 065
     Dates: start: 200511

REACTIONS (8)
  - Back pain [Unknown]
  - Muscle spasms [Unknown]
  - Cardiac disorder [Fatal]
  - Staphylococcal infection [Fatal]
  - Teeth brittle [Not Recovered/Not Resolved]
  - Hyperkinesia [Unknown]
  - Incorrect dose administered [Unknown]
  - Neck pain [Unknown]

NARRATIVE: CASE EVENT DATE: 20121226
